FAERS Safety Report 17116405 (Version 2)
Quarter: 2019Q4

REPORT INFORMATION
  Report Type: Report from Study
  Country: ES (occurrence: ES)
  Receive Date: 20191205
  Receipt Date: 20191220
  Transmission Date: 20200122
  Serious: Yes (Hospitalization)
  Sender: FDA-Public Use
  Company Number: ES-MYLANLABS-2019M1118957

PATIENT
  Age: 83 Year
  Sex: Male

DRUGS (4)
  1. OMEPRAZOLE. [Suspect]
     Active Substance: OMEPRAZOLE
     Indication: PRODUCT USED FOR UNKNOWN INDICATION
     Dosage: 20 MILLIGRAM, QD
     Route: 048
     Dates: start: 2000, end: 20190328
  2. CIDINE                             /00397401/ [Concomitant]
     Indication: HIATUS HERNIA
     Dosage: 3 MILLIGRAM, QD
     Route: 048
     Dates: start: 201903
  3. ACENOCUMAROL [Interacting]
     Active Substance: ACENOCOUMAROL
     Indication: ATRIAL FIBRILLATION
     Dosage: UNK
     Route: 048
     Dates: start: 201705, end: 20190328
  4. TIMOLOL. [Concomitant]
     Active Substance: TIMOLOL
     Indication: GLAUCOMA
     Dosage: 4 GTT DROPS, QD
     Route: 047
     Dates: start: 2016

REACTIONS (2)
  - Drug interaction [Unknown]
  - Haemorrhage intracranial [Recovered/Resolved]

NARRATIVE: CASE EVENT DATE: 20190328
